FAERS Safety Report 9918286 (Version 1)
Quarter: 2014Q1

REPORT INFORMATION
  Report Type: Report from Study
  Country: US (occurrence: US)
  Receive Date: 20140224
  Receipt Date: 20140224
  Transmission Date: 20141002
  Serious: Yes (Hospitalization)
  Sender: FDA-Public Use
  Company Number: US-ROCHE-1329793

PATIENT
  Sex: Female

DRUGS (7)
  1. AVASTIN [Suspect]
     Indication: LUNG NEOPLASM MALIGNANT
     Route: 065
  2. ALOXI [Concomitant]
     Route: 065
  3. DEXA [Concomitant]
     Route: 065
  4. DEXA [Concomitant]
     Route: 065
  5. ALIMTA [Concomitant]
     Route: 065
  6. PEPCID [Concomitant]
  7. BENADRYL (UNITED STATES) [Concomitant]

REACTIONS (3)
  - Psychotic disorder [Unknown]
  - Fatigue [Unknown]
  - Pain [Unknown]
